FAERS Safety Report 13953906 (Version 1)
Quarter: 2017Q3

REPORT INFORMATION
  Report Type: Spontaneous
  Country: US (occurrence: US)
  Receive Date: 20170911
  Receipt Date: 20170911
  Transmission Date: 20171128
  Serious: No
  Sender: FDA-Public Use
  Company Number: US-TEVA-743518USA

PATIENT
  Age: 75 Year
  Sex: Female

DRUGS (5)
  1. XARELTO [Concomitant]
     Indication: ATRIAL FIBRILLATION
  2. LEVOTHYROXINE. [Concomitant]
     Active Substance: LEVOTHYROXINE
  3. VENLAFAXINE [Suspect]
     Active Substance: VENLAFAXINE HYDROCHLORIDE
     Indication: DEPRESSION
     Dosage: 150 MILLIGRAM DAILY; ONCE A DAY
     Route: 048
     Dates: start: 2014
  4. VENLAFAXINE [Suspect]
     Active Substance: VENLAFAXINE HYDROCHLORIDE
     Dosage: 75 MILLIGRAM DAILY; ONCE A DAY
     Route: 048
     Dates: start: 2014
  5. CARDIZEM [Concomitant]
     Active Substance: DILTIAZEM HYDROCHLORIDE

REACTIONS (4)
  - Nausea [Not Recovered/Not Resolved]
  - Vomiting [Unknown]
  - Product physical issue [Unknown]
  - Malaise [Unknown]

NARRATIVE: CASE EVENT DATE: 20170215
